FAERS Safety Report 17469392 (Version 1)
Quarter: 2020Q1

REPORT INFORMATION
  Report Type: Spontaneous
  Country: FR (occurrence: FR)
  Receive Date: 20200227
  Receipt Date: 20200227
  Transmission Date: 20200409
  Serious: Yes (Hospitalization)
  Sender: FDA-Public Use
  Company Number: FR-MYLANLABS-2020M1021299

PATIENT
  Age: 62 Year
  Sex: Male
  Weight: 93 kg

DRUGS (11)
  1. PIPERACILLIN AND TAZOBACTAM [Suspect]
     Active Substance: PIPERACILLIN SODIUM\TAZOBACTAM SODIUM
     Indication: INFECTION
     Dosage: 4 DOSAGE FORM, QD
     Route: 042
     Dates: start: 20191124, end: 20191127
  2. NEBIVOLOL. [Concomitant]
     Active Substance: NEBIVOLOL
     Indication: HYPERTENSION
     Dosage: 5 MILLIGRAM, QD(1-0-0)
     Route: 048
  3. TARKA [Concomitant]
     Active Substance: TRANDOLAPRIL\VERAPAMIL HYDROCHLORIDE
     Indication: HYPERTENSION
     Dosage: 1 DOSAGE FORM, QD(1-0-0)
     Route: 048
  4. KARDEGIC [Concomitant]
     Active Substance: ASPIRIN DL-LYSINE
     Indication: HYPERTENSION
     Dosage: 75 MILLIGRAM, QD(1-0-0)
     Route: 048
  5. ALKERAN [Suspect]
     Active Substance: MELPHALAN
     Indication: PLASMA CELL MYELOMA
     Dosage: 400 MILLIGRAM, CYCLE(200MG/M2 SOIT 400 MG)
     Route: 042
     Dates: start: 20191113, end: 20191113
  6. VALACICLOVIR [Concomitant]
     Active Substance: VALACYCLOVIR HYDROCHLORIDE
     Indication: INFECTION
     Dosage: 500 MILLIGRAM, QD(1-0-0)
     Route: 048
  7. IMOVANE [Concomitant]
     Active Substance: ZOPICLONE
     Indication: INSOMNIA
     Dosage: 7.5 MILLIGRAM, QD(0-0-0-1)
     Route: 048
  8. SKENAN [Concomitant]
     Active Substance: MORPHINE SULFATE
     Indication: PAIN
     Dosage: 80 MILLIGRAM, QD(2-0-2)
     Route: 048
  9. MIANSERINE                         /00390602/ [Concomitant]
     Active Substance: MIANSERIN HYDROCHLORIDE
     Indication: PAIN
     Dosage: 10 MILLIGRAM, QD(0-0-1)
     Route: 048
  10. ENDOXAN                            /00021102/ [Suspect]
     Active Substance: CYCLOPHOSPHAMIDE
     Indication: PLASMA CELL MYELOMA
     Dosage: 6000 MILLIGRAM, CYCLE (3000MG/M2 SOIT 6000MG)
     Route: 042
     Dates: start: 20191009, end: 20191009
  11. PRAVASTATINE                       /00880401/ [Concomitant]
     Active Substance: PRAVASTATIN
     Indication: HYPERCHOLESTEROLAEMIA
     Dosage: 40 MILLIGRAM, QD
     Route: 048

REACTIONS (1)
  - Interstitial lung disease [Not Recovered/Not Resolved]

NARRATIVE: CASE EVENT DATE: 20191216
